FAERS Safety Report 7525794-8 (Version None)
Quarter: 2011Q2

REPORT INFORMATION
  Report Type: 
  Country: None (occurrence: None)
  Receive Date: 20110606
  Receipt Date: 20110222
  Transmission Date: 20111010
  Serious: No
  Sender: FDA-Public Use
  Company Number: A0914887A

PATIENT
  Age: 29 Year
  Sex: Female

DRUGS (5)
  1. CLONAZEPAM [Concomitant]
  2. MELATONIN [Concomitant]
  3. LAMICTAL [Suspect]
     Indication: DEPRESSION
     Route: 048
     Dates: start: 20110204
  4. PRISTIQ [Concomitant]
  5. ADDERALL 10 [Concomitant]

REACTIONS (1)
  - RASH ERYTHEMATOUS [None]
